FAERS Safety Report 5671232-X (Version None)
Quarter: 2008Q1

REPORT INFORMATION
  Report Type: 
  Country: None (occurrence: None)
  Receive Date: 20080318
  Receipt Date: 20080312
  Transmission Date: 20080703
  Serious: Yes (Hospitalization)
  Sender: FDA-Public Use
  Company Number: US-GILEAD-2008-0015701

PATIENT
  Sex: Female
  Weight: 46.308 kg

DRUGS (7)
  1. LETAIRIS [Suspect]
     Indication: PULMONARY HYPERTENSION
     Route: 048
     Dates: start: 20080122
  2. FUROSEMIDE [Concomitant]
     Route: 048
  3. REVATIO [Concomitant]
     Route: 048
  4. LIPITOR [Concomitant]
     Route: 048
  5. WARFARIN SODIUM [Concomitant]
     Route: 048
  6. ALBUTEROL [Concomitant]
     Route: 055
  7. DIGITEK [Concomitant]
     Route: 048

REACTIONS (1)
  - PNEUMONIA [None]
